FAERS Safety Report 24305399 (Version 2)
Quarter: 2025Q3

REPORT INFORMATION
  Report Type: Report from Study
  Country: CA (occurrence: CA)
  Receive Date: 20240911
  Receipt Date: 20250910
  Transmission Date: 20251021
  Serious: No
  Sender: TAKEDA
  Company Number: CA-TAKEDA-2024TUS003865

PATIENT
  Sex: Male

DRUGS (5)
  1. HUMAN IMMUNOGLOBULIN G [Suspect]
     Active Substance: HUMAN IMMUNOGLOBULIN G
     Indication: Primary immunodeficiency syndrome
  2. HUMAN IMMUNOGLOBULIN G [Suspect]
     Active Substance: HUMAN IMMUNOGLOBULIN G
     Dosage: 12 GRAM, 1/WEEK
     Dates: start: 20231001
  3. ACYCLOVIR [Concomitant]
     Active Substance: ACYCLOVIR
  4. FILGRASTIM [Concomitant]
     Active Substance: FILGRASTIM
  5. SULFAMETHOXAZOLE\TRIMETHOPRIM [Concomitant]
     Active Substance: SULFAMETHOXAZOLE\TRIMETHOPRIM

REACTIONS (2)
  - Immunoglobulins abnormal [Unknown]
  - Product dose omission issue [Unknown]
